FAERS Safety Report 12255410 (Version 1)
Quarter: 2016Q2

REPORT INFORMATION
  Report Type: Spontaneous
  Country: DE (occurrence: DE)
  Receive Date: 20160412
  Receipt Date: 20160412
  Transmission Date: 20160815
  Serious: Yes (Hospitalization)
  Sender: FDA-Public Use
  Company Number: DE-STRIDES ARCOLAB LIMITED-2016SP002292

PATIENT

DRUGS (5)
  1. CEFOTAXIME [Concomitant]
     Active Substance: CEFOTAXIME SODIUM
     Indication: PROPHYLAXIS
     Dosage: UNK
  2. DICLOFENAC [Suspect]
     Active Substance: DICLOFENAC
     Indication: PRODUCT USED FOR UNKNOWN INDICATION
     Dosage: 100 MG, SINGLE
  3. VITAMINS                           /00067501/ [Concomitant]
     Active Substance: VITAMINS
     Indication: PRODUCT USED FOR UNKNOWN INDICATION
     Dosage: UNK
  4. FLECAINIDE [Suspect]
     Active Substance: FLECAINIDE
     Indication: TACHYCARDIA FOETAL
     Dosage: 200 MG, QD
  5. IBUPROFEN. [Suspect]
     Active Substance: IBUPROFEN
     Indication: PRODUCT USED FOR UNKNOWN INDICATION
     Dosage: 600 MG, SINGLE

REACTIONS (3)
  - Tubulointerstitial nephritis [Recovered/Resolved]
  - Blood creatinine increased [Recovered/Resolved]
  - Renal tubular disorder [Recovered/Resolved]
